FAERS Safety Report 22136171 (Version 1)
Quarter: 2023Q1

REPORT INFORMATION
  Report Type: Spontaneous
  Country: US (occurrence: None)
  Receive Date: 20230324
  Receipt Date: 20230324
  Transmission Date: 20230417
  Serious: Yes (Other)
  Sender: FDA-Public Use
  Company Number: 2018SF00302

PATIENT

DRUGS (1)
  1. NEXIUM [Suspect]
     Active Substance: ESOMEPRAZOLE MAGNESIUM
     Route: 048
     Dates: start: 2002, end: 2022

REACTIONS (7)
  - Acute kidney injury [Unknown]
  - Anaemia [Unknown]
  - Chronic kidney disease [Unknown]
  - End stage renal disease [Unknown]
  - Hyperparathyroidism secondary [Unknown]
  - Renal failure [Unknown]
  - Rebound acid hypersecretion [Unknown]
